FAERS Safety Report 19658553 (Version 2)
Quarter: 2023Q1

REPORT INFORMATION
  Report Type: Spontaneous
  Country: US (occurrence: US)
  Receive Date: 20210804
  Receipt Date: 20230112
  Transmission Date: 20230417
  Serious: No
  Sender: FDA-Public Use
  Company Number: US-INCYTE CORPORATION-2021IN006695

PATIENT

DRUGS (2)
  1. JAKAFI [Suspect]
     Active Substance: RUXOLITINIB
     Indication: Myeloproliferative neoplasm
     Dosage: 10 MILLIGRAM, QD
     Route: 048
     Dates: start: 20190416
  2. JAKAFI [Suspect]
     Active Substance: RUXOLITINIB
     Dosage: 10 MILLIGRAM, QD
     Route: 048
     Dates: start: 202201

REACTIONS (3)
  - Illness [Not Recovered/Not Resolved]
  - Product dose omission issue [Unknown]
  - Off label use [Unknown]

NARRATIVE: CASE EVENT DATE: 20190416
